FAERS Safety Report 10045402 (Version 1)
Quarter: 2014Q1

REPORT INFORMATION
  Report Type: Other
  Country: FR (occurrence: FR)
  Receive Date: 20140328
  Receipt Date: 20140328
  Transmission Date: 20141002
  Serious: Yes (Other)
  Sender: FDA-Public Use
  Company Number: FR-BRISTOL-MYERS SQUIBB COMPANY-20556437

PATIENT
  Age: 17 Year
  Sex: Female

DRUGS (4)
  1. IFOSFAMIDE [Suspect]
     Indication: OSTEOSARCOMA
     Dosage: 1DF: 3 G/M2/D 2 COURSE
  2. METHOTREXATE [Suspect]
     Indication: OSTEOSARCOMA
     Route: 042
  3. VANCOMYCIN [Suspect]
  4. ETOPOSIDE [Concomitant]
     Dosage: MODIFIED TO 150 MG/M2/D FOR 3 DAYS

REACTIONS (2)
  - Deafness [Recovering/Resolving]
  - Encephalopathy [Recovering/Resolving]
